FAERS Safety Report 10395597 (Version 1)
Quarter: 2014Q3

REPORT INFORMATION
  Report Type: Spontaneous
  Country: US (occurrence: US)
  Receive Date: 20140820
  Receipt Date: 20140820
  Transmission Date: 20150326
  Serious: Yes (Other)
  Sender: FDA-Public Use
  Company Number: US-RECKITT BENCKISER PHARMACEUTICAL, INC-RB-70706-2014

PATIENT
  Sex: Female

DRUGS (2)
  1. BUPRENORPHINE/NALOXONE [Suspect]
     Active Substance: BUPRENORPHINE\NALOXONE
     Indication: DRUG DEPENDENCE
     Dosage: TAPERED DOSES OF MEDICATION; TAKING 1/4 OF AN UNKNOWN UNIT DOSE
     Route: 060
     Dates: end: 20140814
  2. BUPRENORPHINE/NALOXONE [Suspect]
     Active Substance: BUPRENORPHINE\NALOXONE
     Indication: DRUG DEPENDENCE
     Dosage: 24 MG, QD, AT ONE TIME
     Route: 060

REACTIONS (6)
  - Intentional underdose [Recovered/Resolved]
  - Upper limb fracture [Recovered/Resolved]
  - Emotional disorder [Not Recovered/Not Resolved]
  - Wrong technique in drug usage process [Recovered/Resolved]
  - Feeling jittery [Not Recovered/Not Resolved]
  - Hyperhidrosis [Not Recovered/Not Resolved]
